FAERS Safety Report 9735836 (Version 2)
Quarter: 2014Q1

REPORT INFORMATION
  Report Type: Spontaneous
  Country: US (occurrence: None)
  Receive Date: 20131204
  Receipt Date: 20140113
  Transmission Date: 20141002
  Serious: Yes (Other)
  Sender: FDA-Public Use
  Company Number: 2036544

PATIENT
  Age: 58 Year
  Sex: Female
  Weight: 72.72 kg

DRUGS (2)
  1. DEMEROL [Suspect]
     Indication: THERAPEUTIC PROCEDURE
     Dosage: 50 MG MILLIGRAM(S), INTRAVENOUS (NOT OTHERWISE SPECIFIED)?
     Route: 042
     Dates: start: 20131114, end: 20131114
  2. VERSED [Suspect]
     Indication: PRODUCT USED FOR UNKNOWN INDICATION
     Dates: start: 20131114

REACTIONS (4)
  - Hypoxia [None]
  - Hypopnoea [None]
  - Depressed level of consciousness [None]
  - Hypotension [None]
